FAERS Safety Report 11585688 (Version 16)
Quarter: 2017Q1

REPORT INFORMATION
  Report Type: Report from Study
  Country: LB (occurrence: LB)
  Receive Date: 20151001
  Receipt Date: 20170202
  Transmission Date: 20170428
  Serious: Yes (Hospitalization, Other)
  Sender: FDA-Public Use
  Company Number: PHHY2015LB117750

PATIENT
  Sex: Female

DRUGS (7)
  1. EUTHYROX [Concomitant]
     Active Substance: LEVOTHYROXINE SODIUM
     Indication: PRODUCT USED FOR UNKNOWN INDICATION
     Dosage: 2 DF, QD (2  TAB/D)
     Route: 048
  2. FLIXONASE [Concomitant]
     Active Substance: FLUTICASONE PROPIONATE
     Indication: PRODUCT USED FOR UNKNOWN INDICATION
     Dosage: UNK UNK, PRN (SOS)
     Route: 045
  3. ZYLORIC [Concomitant]
     Active Substance: ALLOPURINOL
     Indication: PRODUCT USED FOR UNKNOWN INDICATION
     Dosage: 1 DF, QD (1 TAB/D)
     Route: 048
  4. VALTREX [Concomitant]
     Active Substance: VALACYCLOVIR HYDROCHLORIDE
     Indication: PRODUCT USED FOR UNKNOWN INDICATION
     Dosage: 3 DF, QW
     Route: 048
  5. OROCAL D [Concomitant]
     Indication: PRODUCT USED FOR UNKNOWN INDICATION
     Dosage: 2 DF, QD (2 TAB/D)
     Route: 048
  6. TASIGNA [Suspect]
     Active Substance: NILOTINIB
     Indication: CHRONIC MYELOID LEUKAEMIA
     Dosage: 600 MG, QD
     Route: 048
     Dates: start: 20150915
  7. INDERAL [Concomitant]
     Active Substance: PROPRANOLOL HYDROCHLORIDE
     Indication: PRODUCT USED FOR UNKNOWN INDICATION
     Dosage: 1 DF, QD (1 TAB/D)
     Route: 048

REACTIONS (32)
  - Disturbance in attention [Not Recovered/Not Resolved]
  - Headache [Unknown]
  - Anxiety [Not Recovered/Not Resolved]
  - Leiomyoma [Unknown]
  - Bone pain [Recovered/Resolved]
  - Nasopharyngitis [Unknown]
  - Chronic sinusitis [Recovered/Resolved]
  - Uterine disorder [Unknown]
  - Leukocytosis [Not Recovered/Not Resolved]
  - Hot flush [Not Recovered/Not Resolved]
  - Bone lesion [Not Recovered/Not Resolved]
  - Ephelides [Not Recovered/Not Resolved]
  - Hirsutism [Not Recovered/Not Resolved]
  - Arthralgia [Unknown]
  - Rheumatoid nodule [Recovering/Resolving]
  - Skin disorder [Not Recovered/Not Resolved]
  - Menstrual disorder [Not Recovered/Not Resolved]
  - Influenza [Not Recovered/Not Resolved]
  - Alopecia [Not Recovered/Not Resolved]
  - Nail discolouration [Not Recovered/Not Resolved]
  - Crohn^s disease [Recovering/Resolving]
  - Feeling abnormal [Unknown]
  - Tendonitis [Recovered/Resolved]
  - Granuloma [Unknown]
  - Nausea [Not Recovered/Not Resolved]
  - Breast engorgement [Unknown]
  - Secretion discharge [Unknown]
  - Aphonia [Unknown]
  - Skin discolouration [Not Recovered/Not Resolved]
  - Abdominal distension [Not Recovered/Not Resolved]
  - Fatigue [Not Recovered/Not Resolved]
  - Inappropriate schedule of drug administration [Not Recovered/Not Resolved]

NARRATIVE: CASE EVENT DATE: 20160111
